FAERS Safety Report 18077326 (Version 1)
Quarter: 2020Q3

REPORT INFORMATION
  Report Type: Spontaneous
  Country: DE (occurrence: DE)
  Receive Date: 20200728
  Receipt Date: 20200728
  Transmission Date: 20201103
  Serious: Yes (Other)
  Sender: FDA-Public Use
  Company Number: DE-ACCORD-192930

PATIENT
  Age: 1 Day
  Sex: Female
  Weight: 2.4 kg

DRUGS (7)
  1. PARACETAMOL [Concomitant]
     Active Substance: ACETAMINOPHEN
     Indication: PAIN
     Dosage: 1000 MG/D / TWICE?STRENGTH 500
     Route: 064
  2. ESCITALOPRAM [Suspect]
     Active Substance: ESCITALOPRAM OXALATE
     Indication: ANXIETY DISORDER
     Dosage: 10 MG/D
     Route: 064
     Dates: start: 20190227, end: 20191210
  3. OXYTOCIN/OXYTOCIN CITRATE [Concomitant]
     Active Substance: OXYTOCIN CITRATE
     Indication: OBSTETRICAL PROCEDURE
     Route: 064
     Dates: start: 20191210, end: 20191210
  4. MARMOR D6 / STIBIUM D6 [Concomitant]
     Indication: ABORTION THREATENED
     Route: 064
     Dates: start: 20190518, end: 20190521
  5. UTROGEST [Concomitant]
     Active Substance: PROGESTERONE
     Indication: ABORTION THREATENED
     Dosage: 200 MG/D / 2X100MG DAILY 2 SEPARATED DOSES
     Route: 064
  6. CYTOTEC [Concomitant]
     Active Substance: MISOPROSTOL
     Indication: LABOUR INDUCTION
     Route: 064
     Dates: start: 20191208, end: 20191210
  7. CLEXANE 20 [Concomitant]
     Indication: THROMBOSIS PROPHYLAXIS
     Dosage: 20 MG/D
     Route: 064
     Dates: start: 20190518, end: 20190521

REACTIONS (3)
  - Foetal exposure during pregnancy [Unknown]
  - Small for dates baby [Recovered/Resolved]
  - Temperature regulation disorder [Recovered/Resolved]

NARRATIVE: CASE EVENT DATE: 20191210
